FAERS Safety Report 6783585-X (Version None)
Quarter: 2010Q2

REPORT INFORMATION
  Report Type: 
  Country: None (occurrence: None)
  Receive Date: 20100622
  Receipt Date: 20100617
  Transmission Date: 20101027
  Serious: Yes (Other)
  Sender: FDA-Public Use
  Company Number: GB-WYE-G05649610

PATIENT
  Sex: Female

DRUGS (3)
  1. EFFEXOR XR [Suspect]
     Indication: DEPRESSION
     Route: 048
     Dates: start: 20050225
  2. CLOZAPINE [Concomitant]
     Dosage: UNKNOWN
     Dates: start: 20080101
  3. OLANZAPINE [Concomitant]
     Dosage: 2.5 MG EVERY 1 PRN
     Route: 048

REACTIONS (3)
  - ABDOMINAL DISTENSION [None]
  - ABDOMINAL PAIN [None]
  - URINARY TRACT INFECTION [None]
